FAERS Safety Report 18522791 (Version 2)
Quarter: 2020Q4

REPORT INFORMATION
  Report Type: Spontaneous
  Country: DE (occurrence: DE)
  Receive Date: 20201119
  Receipt Date: 20201203
  Transmission Date: 20210114
  Serious: Yes (Other)
  Sender: FDA-Public Use
  Company Number: DE-TEVA-2020-DE-1848393

PATIENT
  Age: 80 Year
  Sex: Male

DRUGS (4)
  1. DICLOFENAC RATIOPHARM 50 MG MAGENSAFTRESISTENTE TABLETTEN [Suspect]
     Active Substance: DICLOFENAC SODIUM
     Indication: PAIN
     Dosage: TOOK ONE TABLET AT 7 O^CLOCK A.M. BEFORE BREAKFAST
     Route: 048
     Dates: end: 2020
  2. NIFEDIPIN [Concomitant]
     Active Substance: NIFEDIPINE
     Dosage: TOOK IN THE EVENING
  3. ASS100 [Concomitant]
     Active Substance: PENTOXIFYLLINE
  4. TAMSULOSIN [Concomitant]
     Active Substance: TAMSULOSIN
     Dosage: TOOK IN THE EVENING

REACTIONS (4)
  - Anaphylactic shock [Recovered/Resolved]
  - Loss of consciousness [Recovered/Resolved]
  - Blood pressure systolic [Recovered/Resolved]
  - Blood immunoglobulin E increased [Not Recovered/Not Resolved]
